FAERS Safety Report 11548147 (Version 1)
Quarter: 2015Q3

REPORT INFORMATION
  Report Type: Report from Study
  Country: US (occurrence: US)
  Receive Date: 20150924
  Receipt Date: 20150924
  Transmission Date: 20151125
  Serious: Yes (Other)
  Sender: FDA-Public Use
  Company Number: US-ABBVIE-15P-163-1469081-00

PATIENT
  Age: 57 Year
  Sex: Female

DRUGS (1)
  1. VIEKIRA PAK [Suspect]
     Active Substance: DASABUVIR\OMBITASVIR\PARITAPREVIR\RITONAVIR
     Indication: CHRONIC HEPATITIS C
     Route: 048
     Dates: start: 20150822

REACTIONS (4)
  - Pain [Unknown]
  - Skin discolouration [Unknown]
  - Drug dose omission [Unknown]
  - Mass [Unknown]

NARRATIVE: CASE EVENT DATE: 20150913
